FAERS Safety Report 19874748 (Version 4)
Quarter: 2021Q4

REPORT INFORMATION
  Report Type: Spontaneous
  Country: JP (occurrence: JP)
  Receive Date: 20210922
  Receipt Date: 20211119
  Transmission Date: 20220303
  Serious: Yes (Hospitalization, Other)
  Sender: FDA-Public Use
  Company Number: JP-MTPC-MTPC2021-0022755

PATIENT
  Age: 3 Year
  Sex: Male

DRUGS (4)
  1. REMICADE [Suspect]
     Active Substance: INFLIXIMAB
     Indication: Kawasaki^s disease
     Dosage: 5 MILLIGRAM/KILOGRAM, QD
     Route: 042
     Dates: start: 20210312, end: 20210312
  2. ASPIRIN [Concomitant]
     Active Substance: ASPIRIN
     Indication: Kawasaki^s disease
     Dosage: 60 MILLIGRAM, QD
     Route: 048
     Dates: start: 20210308
  3. WARFARIN POTASSIUM [Concomitant]
     Active Substance: WARFARIN POTASSIUM
     Indication: Kawasaki^s disease
     Dosage: 1.5 MILLIGRAM, QD
     Route: 048
     Dates: start: 20210316
  4. ENALAPRIL [Concomitant]
     Active Substance: ENALAPRIL
     Indication: Kawasaki^s disease
     Dosage: 3 MILLIGRAM, QD
     Route: 048
     Dates: start: 20210330

REACTIONS (1)
  - Nephritis bacterial [Recovered/Resolved]

NARRATIVE: CASE EVENT DATE: 20210514
